FAERS Safety Report 5128928-8 (Version None)
Quarter: 2006Q4

REPORT INFORMATION
  Report Type: 
  Country: None (occurrence: None)
  Receive Date: 20061011
  Receipt Date: 20060920
  Transmission Date: 20070319
  Serious: Yes (Life-Threatening, Hospitalization, Disabling, Congenital Anomaly, Other)
  Sender: FDA-Public Use
  Company Number: US200609005106

PATIENT
  Age: 2 Day
  Sex: Female

DRUGS (1)
  1. ZYPREXA [Suspect]
     Dosage: TRANSPLACENTAL
     Route: 064
     Dates: start: 20040501, end: 20040910

REACTIONS (26)
  - ABASIA [None]
  - APGAR SCORE LOW [None]
  - CARDIAC MURMUR [None]
  - CEREBRAL HAEMORRHAGE NEONATAL [None]
  - CEREBRAL INFARCTION FOETAL [None]
  - CEREBROVASCULAR ACCIDENT [None]
  - COMMUNICATION DISORDER [None]
  - CONVULSION NEONATAL [None]
  - CYANOSIS NEONATAL [None]
  - DEVELOPMENTAL DELAY [None]
  - DRUG EXPOSURE DURING PREGNANCY [None]
  - DRUG WITHDRAWAL SYNDROME NEONATAL [None]
  - FLOPPY INFANT [None]
  - FOETAL HEART RATE DECREASED [None]
  - FOETAL MOVEMENTS DECREASED [None]
  - HYPERTENSION NEONATAL [None]
  - HYPOGLYCAEMIA NEONATAL [None]
  - INFANTILE APNOEIC ATTACK [None]
  - INTRAVENTRICULAR HAEMORRHAGE NEONATAL [None]
  - MONOPLEGIA [None]
  - NEONATAL RESPIRATORY DISTRESS SYNDROME [None]
  - PERIVENTRICULAR LEUKOMALACIA [None]
  - PREMATURE BABY [None]
  - TREMOR NEONATAL [None]
  - TRICUSPID VALVE INCOMPETENCE [None]
  - VENTRICULAR HYPERTROPHY [None]
